FAERS Safety Report 8301213-9 (Version None)
Quarter: 2012Q2

REPORT INFORMATION
  Report Type: 
  Country: None (occurrence: None)
  Receive Date: 20120420
  Receipt Date: 20120420
  Transmission Date: 20120825
  Serious: Yes (Life-Threatening, Hospitalization)
  Sender: FDA-Public Use
  Company Number: None

PATIENT
  Age: 43 Year
  Sex: Female
  Weight: 104.32 kg

DRUGS (1)
  1. NPLATE [Suspect]
     Indication: IDIOPATHIC THROMBOCYTOPENIC PURPURA
     Dosage: .1CC
     Route: 058
     Dates: start: 20101230, end: 20110104

REACTIONS (10)
  - COMPARTMENT SYNDROME [None]
  - AORTIC THROMBOSIS [None]
  - DRUG HYPERSENSITIVITY [None]
  - LUNG DISORDER [None]
  - VEIN DISORDER [None]
  - PULMONARY THROMBOSIS [None]
  - THROMBOSIS [None]
  - LYMPHATIC DISORDER [None]
  - MIGRAINE [None]
  - SUBARACHNOID HAEMORRHAGE [None]
